FAERS Safety Report 6756988-7 (Version None)
Quarter: 2010Q2

REPORT INFORMATION
  Report Type: 
  Country: None (occurrence: None)
  Receive Date: 20100604
  Receipt Date: 20100527
  Transmission Date: 20101027
  Serious: Yes (Hospitalization, Other)
  Sender: FDA-Public Use
  Company Number: IT-ABBOTT-09P-083-0606990-00

PATIENT
  Sex: Male
  Weight: 60 kg

DRUGS (6)
  1. HUMIRA [Suspect]
     Indication: CROHN'S DISEASE
     Route: 058
     Dates: start: 20090224
  2. PERINDOPRIL [Concomitant]
     Indication: HYPERTENSION
     Dates: start: 19990101
  3. AMLODIPINE [Concomitant]
     Indication: HYPERTENSION
     Dates: start: 19990101
  4. ATORVASTATIN [Concomitant]
     Indication: CARDIOVASCULAR EVENT PROPHYLAXIS
     Dates: start: 19990101
  5. LANSOPRAZOLE [Concomitant]
     Indication: PEPTIC ULCER
     Dates: start: 20080601
  6. MOBIC [Concomitant]
     Indication: ARTHRALGIA
     Dates: start: 20091001, end: 20091027

REACTIONS (2)
  - HYPOCALCAEMIA [None]
  - HYPOKALAEMIA [None]
